FAERS Safety Report 9678446 (Version 1)
Quarter: 2013Q4

REPORT INFORMATION
  Report Type: Other
  Country: GB (occurrence: GB)
  Receive Date: 20131108
  Receipt Date: 20131108
  Transmission Date: 20140711
  Serious: Yes (Other)
  Sender: FDA-Public Use
  Company Number: GB-NOVEN-13GB008031

PATIENT
  Age: 36 Year
  Sex: Male

DRUGS (10)
  1. LITHIUM CARBONATE [Suspect]
     Dosage: UNK, INCONSISTENTLY
     Dates: start: 199801, end: 2011
  2. PAROXETINE [Suspect]
     Indication: PRODUCT USED FOR UNKNOWN INDICATION
     Dosage: UNK
  3. ZOPICLONE [Concomitant]
     Indication: PRODUCT USED FOR UNKNOWN INDICATION
     Dosage: UNK
     Dates: end: 2011
  4. AMISULPRIDE [Concomitant]
     Indication: PRODUCT USED FOR UNKNOWN INDICATION
     Dosage: UNK
     Dates: start: 2011, end: 2011
  5. CHLORPROMAZINE [Concomitant]
     Indication: PRODUCT USED FOR UNKNOWN INDICATION
     Dosage: UNK
     Dates: start: 2011
  6. SEROQUEL XR [Concomitant]
     Indication: PSYCHOTIC DISORDER
     Dosage: 700 MG, QD
     Route: 048
     Dates: start: 201202
  7. SEROQUEL XR [Concomitant]
     Dosage: 600 MG, QD
     Route: 048
     Dates: start: 2011
  8. SEROQUEL XR [Concomitant]
     Dosage: UNK
  9. SERTRALINE [Concomitant]
     Dosage: UNK
     Dates: end: 2011
  10. VENLAFAXINE [Concomitant]
     Dosage: UNK
     Dates: start: 1997, end: 2011

REACTIONS (11)
  - Convulsion [Unknown]
  - Cerebrovascular accident [Unknown]
  - Feeling abnormal [Unknown]
  - Hypomania [Unknown]
  - Insomnia [Unknown]
  - Tourette^s disorder [Unknown]
  - Oromandibular dystonia [Unknown]
  - Weight decreased [Unknown]
  - Drug ineffective [Unknown]
  - Drug effect decreased [Unknown]
  - Suspected counterfeit product [Unknown]
